FAERS Safety Report 9292886 (Version 1)
Quarter: 2013Q2

REPORT INFORMATION
  Report Type: Spontaneous
  Country: US (occurrence: US)
  Receive Date: 20130516
  Receipt Date: 20130516
  Transmission Date: 20140414
  Serious: No
  Sender: FDA-Public Use
  Company Number: US-JNJFOC-20130502416

PATIENT
  Age: 78 Year
  Sex: Female
  Weight: 95.26 kg

DRUGS (11)
  1. DURAGESIC [Suspect]
     Indication: ARTHRALGIA
     Dosage: 2 PATCHES OF 75 UG/HR
     Route: 062
     Dates: start: 2013, end: 2013
  2. DURAGESIC [Suspect]
     Indication: ARTHRALGIA
     Dosage: 2 PATCHES OF 75 UG/HR
     Route: 062
     Dates: start: 2013
  3. DURAGESIC [Suspect]
     Indication: ARTHRALGIA
     Route: 062
     Dates: end: 2013
  4. DURAGESIC [Suspect]
     Indication: ARTHRALGIA
     Route: 062
  5. SANDOZ FENTANYL [Suspect]
     Indication: ARTHRALGIA
     Dosage: 2 PATCHES OF 75 UG/HR
     Route: 062
     Dates: start: 2013, end: 2013
  6. SANDOZ FENTANYL [Suspect]
     Indication: ARTHRALGIA
     Route: 062
  7. OXYCODONE [Concomitant]
     Indication: BREAKTHROUGH PAIN
     Dosage: AS NEEDED
     Route: 048
  8. PREDNISONE [Concomitant]
     Route: 048
  9. NEXIUM [Concomitant]
     Indication: GASTROOESOPHAGEAL REFLUX DISEASE
  10. SIMVASTATIN [Concomitant]
     Indication: BLOOD CHOLESTEROL INCREASED
  11. LISINOPRIL [Concomitant]
     Indication: CARDIAC DISORDER

REACTIONS (4)
  - Drug ineffective [Recovered/Resolved]
  - Inappropriate schedule of drug administration [Unknown]
  - Product quality issue [Unknown]
  - Product packaging quantity issue [Unknown]
